FAERS Safety Report 4486888-7 (Version None)
Quarter: 2004Q3

REPORT INFORMATION
  Report Type: 
  Country: None (occurrence: None)
  Receive Date: 20040921
  Receipt Date: 20031003
  Transmission Date: 20050211
  Serious: Yes (Hospitalization)
  Sender: FDA-Public Use
  Company Number: 163-20785-03100094

PATIENT
  Age: 63 Year
  Sex: Female

DRUGS (2)
  1. THALOMID [Suspect]
     Indication: MYELODYSPLASTIC SYNDROME
     Dosage: 200 MG, DAILY, ORAL
     Route: 048
     Dates: start: 20021101, end: 20030301
  2. DESFERAL (DEFEROXAMINE MESILATE) [Concomitant]

REACTIONS (2)
  - COUGH [None]
  - PYREXIA [None]
